FAERS Safety Report 11964565 (Version 1)
Quarter: 2016Q1

REPORT INFORMATION
  Report Type: Spontaneous
  Country: US (occurrence: None)
  Receive Date: 20160125
  Receipt Date: 20160125
  Transmission Date: 20160526
  Serious: No
  Sender: FDA-Public Use
  Company Number: None

PATIENT
  Age: 65 Year
  Sex: Female
  Weight: 52.62 kg

DRUGS (2)
  1. MULTI VITAMIN [Concomitant]
     Active Substance: VITAMINS
  2. ALPRAZOLAM 1 MG SUN PHARM [Suspect]
     Active Substance: ALPRAZOLAM
     Indication: INSOMNIA
     Dosage: 1/2 - 1 AS NEED FOR INSOMNIA, AT BEDTIME, TAKEN BY MOUTH

REACTIONS (3)
  - Insomnia [None]
  - Product substitution issue [None]
  - Psychomotor hyperactivity [None]

NARRATIVE: CASE EVENT DATE: 20160120
